FAERS Safety Report 25879754 (Version 1)
Quarter: 2025Q4

REPORT INFORMATION
  Report Type: Report from Study
  Country: EG (occurrence: EG)
  Receive Date: 20251003
  Receipt Date: 20251003
  Transmission Date: 20260117
  Serious: Yes (Hospitalization)
  Sender: ABBVIE
  Company Number: EG-ABBVIE-6482916

PATIENT
  Age: 2 Month
  Sex: Female
  Weight: 2.6 kg

DRUGS (4)
  1. HUMIRA [Suspect]
     Active Substance: ADALIMUMAB
     Indication: Maternal exposure timing unspecified
     Route: 064
  2. SULFASALAZINE [Suspect]
     Active Substance: SULFASALAZINE
     Indication: Maternal exposure timing unspecified
     Route: 064
  3. PLAQUENIL [Suspect]
     Active Substance: HYDROXYCHLOROQUINE SULFATE
     Indication: Maternal exposure timing unspecified
     Route: 064
  4. CORTISONE [Suspect]
     Active Substance: CORTISONE
     Indication: Maternal exposure timing unspecified
     Route: 064

REACTIONS (4)
  - Respiratory disorder [Unknown]
  - Foetal exposure during pregnancy [Unknown]
  - Gastrooesophageal reflux disease [Unknown]
  - Premature baby [Unknown]

NARRATIVE: CASE EVENT DATE: 20250729
